FAERS Safety Report 7169771-8 (Version None)
Quarter: 2010Q4

REPORT INFORMATION
  Report Type: 
  Country: None (occurrence: None)
  Receive Date: 20101217
  Receipt Date: 20100707
  Transmission Date: 20110411
  Serious: Yes (Hospitalization, Disabling, Other)
  Sender: FDA-Public Use
  Company Number: A0858376A

PATIENT
  Age: 61 Year
  Sex: Male
  Weight: 102.3 kg

DRUGS (4)
  1. SORIATANE [Suspect]
     Indication: PSORIASIS
     Dosage: 25MG TWICE PER DAY
     Route: 048
     Dates: start: 20060101, end: 20100201
  2. ANTIBIOTICS [Concomitant]
  3. NORVASC [Concomitant]
  4. TOPROL-XL [Concomitant]

REACTIONS (2)
  - INFECTION [None]
  - SKIN ULCER [None]
